FAERS Safety Report 7179251-1 (Version None)
Quarter: 2010Q4

REPORT INFORMATION
  Report Type: 
  Country: None (occurrence: None)
  Receive Date: 20101221
  Receipt Date: 20101213
  Transmission Date: 20110411
  Serious: Yes (Other)
  Sender: FDA-Public Use
  Company Number: US-SANOFI-AVENTIS-2010SA075439

PATIENT
  Age: 70 Year
  Sex: Female

DRUGS (6)
  1. MULTAQ [Suspect]
     Indication: ATRIAL FIBRILLATION
     Route: 048
     Dates: start: 20101209
  2. COUMADIN [Concomitant]
     Indication: ATRIAL FIBRILLATION
     Route: 048
  3. COUMADIN [Concomitant]
     Route: 048
     Dates: start: 20101212, end: 20101212
  4. CARDIZEM [Concomitant]
     Indication: ATRIAL FIBRILLATION
     Route: 041
     Dates: start: 20101209, end: 20101209
  5. SYNTHROID [Concomitant]
  6. ATENOLOL [Concomitant]
     Indication: ATRIAL FIBRILLATION
     Dates: end: 20101209

REACTIONS (3)
  - INTERNATIONAL NORMALISED RATIO INCREASED [None]
  - UNDERDOSE [None]
  - VISION BLURRED [None]
